FAERS Safety Report 9385444 (Version 1)
Quarter: 2013Q3

REPORT INFORMATION
  Report Type: Spontaneous
  Country: US (occurrence: US)
  Receive Date: 20130705
  Receipt Date: 20130705
  Transmission Date: 20140515
  Serious: No
  Sender: FDA-Public Use
  Company Number: US-009507513-1306USA011027

PATIENT
  Sex: Female

DRUGS (2)
  1. DULERA [Suspect]
     Dosage: UNKNOWN
     Route: 055
  2. ARM + HAMMER BAKING SODA [Suspect]
     Dosage: U
     Route: 048

REACTIONS (1)
  - Foaming at mouth [Recovered/Resolved]
